FAERS Safety Report 5885431-5 (Version None)
Quarter: 2008Q3

REPORT INFORMATION
  Report Type: 
  Country: None (occurrence: None)
  Receive Date: 20080916
  Receipt Date: 20080902
  Transmission Date: 20090109
  Serious: Yes (Other)
  Sender: FDA-Public Use
  Company Number: CA-ELI_LILLY_AND_COMPANY-CA200807005185

PATIENT
  Age: 45 Year
  Sex: Male

DRUGS (3)
  1. CYMBALTA [Suspect]
     Dosage: 60 MG, DAILY (1/D)
     Dates: start: 20080401
  2. CYMBALTA [Interacting]
     Dosage: 60 MG, QOD
     Dates: start: 20080101
  3. ALPRAZOLAM [Concomitant]

REACTIONS (3)
  - DRUG INTERACTION [None]
  - INSOMNIA [None]
  - SINUS ARRHYTHMIA [None]
